FAERS Safety Report 15901435 (Version 2)
Quarter: 2019Q4

REPORT INFORMATION
  Report Type: Spontaneous
  Country: IT (occurrence: IT)
  Receive Date: 20190201
  Receipt Date: 20191210
  Transmission Date: 20200122
  Serious: Yes (Other)
  Sender: FDA-Public Use
  Company Number: IT-GILEAD-2019-0388319

PATIENT
  Age: 60 Year
  Sex: Female

DRUGS (6)
  1. RANOLAZINE. [Suspect]
     Active Substance: RANOLAZINE
     Indication: ACUTE CORONARY SYNDROME
     Route: 065
     Dates: start: 20180101
  2. METOPROLOL TARTRATE. [Suspect]
     Active Substance: METOPROLOL TARTRATE
     Indication: ACUTE CORONARY SYNDROME
     Route: 065
     Dates: start: 20130101
  3. ZOFENOPRIL [Concomitant]
     Active Substance: ZOFENOPRIL
  4. EZETIMIBE;SIMVASTATIN [Concomitant]
     Active Substance: EZETIMIBE\SIMVASTATIN
  5. CLOPIDOGREL BISULFATE. [Suspect]
     Active Substance: CLOPIDOGREL BISULFATE
     Indication: ACUTE CORONARY SYNDROME
     Dosage: 75 MG, QD
     Route: 048
     Dates: start: 20130101
  6. ACETYLSALICYLIC ACID [Concomitant]
     Active Substance: ASPIRIN

REACTIONS (7)
  - Hypertensive crisis [Not Recovered/Not Resolved]
  - Off label use [Unknown]
  - Treatment noncompliance [Not Recovered/Not Resolved]
  - Medication error [Not Recovered/Not Resolved]
  - Product administration error [Not Recovered/Not Resolved]
  - Dyspnoea [Not Recovered/Not Resolved]
  - Migraine [Not Recovered/Not Resolved]

NARRATIVE: CASE EVENT DATE: 20180101
